FAERS Safety Report 21246763 (Version 2)
Quarter: 2022Q3

REPORT INFORMATION
  Report Type: Spontaneous
  Country: US (occurrence: US)
  Receive Date: 20220824
  Receipt Date: 20220907
  Transmission Date: 20221026
  Serious: No
  Sender: FDA-Public Use
  Company Number: None

PATIENT
  Age: 69 Year

DRUGS (1)
  1. LORAZEPAM [Suspect]
     Active Substance: LORAZEPAM
     Indication: Product used for unknown indication
     Dosage: 1 AND HALF  2 MGS A DAY
     Route: 065

REACTIONS (7)
  - Adverse drug reaction [Unknown]
  - Dysgeusia [Unknown]
  - Product taste abnormal [Unknown]
  - Drug ineffective [Unknown]
  - Poor quality product administered [Unknown]
  - Product solubility abnormal [Unknown]
  - Product substitution issue [Unknown]
